FAERS Safety Report 7561712-4 (Version None)
Quarter: 2011Q2

REPORT INFORMATION
  Report Type: 
  Country: None (occurrence: None)
  Receive Date: 20110621
  Receipt Date: 20101004
  Transmission Date: 20111010
  Serious: No
  Sender: FDA-Public Use
  Company Number: US-ASTRAZENECA-2010SE44131

PATIENT
  Age: 20882 Day
  Sex: Female

DRUGS (1)
  1. RHINOCORT [Suspect]
     Indication: EAR DISCOMFORT
     Route: 045
     Dates: start: 20100906

REACTIONS (3)
  - HYPOACUSIS [None]
  - DEVICE MISUSE [None]
  - EAR DISCOMFORT [None]
